FAERS Safety Report 15176075 (Version 3)
Quarter: 2019Q2

REPORT INFORMATION
  Report Type: Report from Study
  Country: CA (occurrence: CA)
  Receive Date: 20180720
  Receipt Date: 20190521
  Transmission Date: 20190711
  Serious: Yes (Other)
  Sender: FDA-Public Use
  Company Number: CA-BRISTOL-MYERS SQUIBB COMPANY-BMS-2017-038774

PATIENT
  Age: 60 Year
  Sex: Female

DRUGS (1)
  1. ABATACEPT [Suspect]
     Active Substance: ABATACEPT
     Indication: RHEUMATOID ARTHRITIS
     Dosage: 750 MG, Q4WK
     Route: 042
     Dates: start: 20150119

REACTIONS (9)
  - Sinusitis [Recovering/Resolving]
  - Ear pain [Unknown]
  - Nasal polyps [Recovered/Resolved]
  - Cough [Unknown]
  - Injection site pain [Recovered/Resolved]
  - Upper-airway cough syndrome [Unknown]
  - Nasopharyngitis [Unknown]
  - Musculoskeletal pain [Unknown]
  - Pain [Unknown]

NARRATIVE: CASE EVENT DATE: 20170424
